FAERS Safety Report 18875911 (Version 1)
Quarter: 2021Q1

REPORT INFORMATION
  Report Type: Spontaneous
  Country: US (occurrence: US)
  Receive Date: 20210210
  Receipt Date: 20210210
  Transmission Date: 20210420
  Serious: Yes (Hospitalization)
  Sender: FDA-Public Use
  Company Number: US-TEVA-2021-US-1876740

PATIENT
  Age: 88 Year
  Sex: Male
  Weight: 77.11 kg

DRUGS (15)
  1. CARVEDILOL. [Concomitant]
     Active Substance: CARVEDILOL
     Dosage: 6.25 MILLIGRAM DAILY;
  2. BACLOFEN. [Concomitant]
     Active Substance: BACLOFEN
     Dosage: 5 MILLIGRAM DAILY;
  3. ACETAMINOPHEN PRN [Concomitant]
  4. THIAMINE. [Concomitant]
     Active Substance: THIAMINE
     Dosage: ONCE DAILY
  5. MULTIVITAMIN [Concomitant]
     Active Substance: VITAMINS
     Dosage: 3 ML DAILY;
  6. LANSOPRAZOLE. [Concomitant]
     Active Substance: LANSOPRAZOLE
     Dosage: 10 ML DAILY; 10 ML ONCE DAILY
  7. LEVOTHYROXINE. [Concomitant]
     Active Substance: LEVOTHYROXINE
  8. METAMUCIL [Concomitant]
     Active Substance: PLANTAGO SEED
  9. DULOXETINE. [Concomitant]
     Active Substance: DULOXETINE
     Dosage: 40 MILLIGRAM DAILY;
  10. RIVASTIGMINE. [Concomitant]
     Active Substance: RIVASTIGMINE
     Dosage: RIVASTIGMINE PATCH 4.6 MG CHANGE DAILY
  11. MEMANTINE. [Concomitant]
     Active Substance: MEMANTINE
     Dosage: 5 MILLIGRAM DAILY;
  12. MELATONIN [Concomitant]
     Active Substance: MELATONIN
  13. DUTASTERIDE. [Concomitant]
     Active Substance: DUTASTERIDE
     Dosage: .5 MILLIGRAM DAILY;
  14. MODAFINIL. [Suspect]
     Active Substance: MODAFINIL
     Dosage: 200 MILLIGRAM DAILY;
     Route: 048
     Dates: start: 202101
  15. ELIQUIS [Concomitant]
     Active Substance: APIXABAN
     Dosage: 2.5 BID

REACTIONS (5)
  - Hepatic enzyme increased [Unknown]
  - Wrong technique in product usage process [Unknown]
  - Infection [Unknown]
  - Incorrect route of product administration [Unknown]
  - Urinary tract infection [Unknown]
